FAERS Safety Report 10524430 (Version 1)
Quarter: 2014Q4

REPORT INFORMATION
  Report Type: Spontaneous
  Country: US (occurrence: US)
  Receive Date: 20141017
  Receipt Date: 20141017
  Transmission Date: 20150528
  Serious: No
  Sender: FDA-Public Use
  Company Number: US-009507513-1409USA014919

PATIENT
  Sex: Female

DRUGS (1)
  1. NEXPLANON [Suspect]
     Active Substance: ETONOGESTREL
     Indication: CONTRACEPTION
     Dosage: 1 ROD/ ONCE
     Route: 059

REACTIONS (5)
  - Emotional disorder [Unknown]
  - Insomnia [Unknown]
  - Mental disorder [Unknown]
  - Hyperhidrosis [Unknown]
  - Mood swings [Unknown]
